FAERS Safety Report 4341499-9 (Version None)
Quarter: 2004Q2

REPORT INFORMATION
  Report Type: 
  Country: None (occurrence: None)
  Receive Date: 20040415
  Receipt Date: 20040407
  Transmission Date: 20050107
  Serious: Yes (Hospitalization)
  Sender: FDA-Public Use
  Company Number: 2004024424

PATIENT
  Age: 65 Year
  Sex: Female

DRUGS (2)
  1. TAHOR (ATORVASTATIN) [Suspect]
     Indication: PULMONARY EMBOLISM
     Dosage: 10 MG (DAILY)
     Dates: end: 20040101
  2. FLUINDIONE (FLUINDIONE) [Concomitant]

REACTIONS (3)
  - CYTOLYTIC HEPATITIS [None]
  - DYSPNOEA [None]
  - FATIGUE [None]
